FAERS Safety Report 6829042-3 (Version None)
Quarter: 2010Q3

REPORT INFORMATION
  Report Type: 
  Country: None (occurrence: None)
  Receive Date: 20100709
  Receipt Date: 20070501
  Transmission Date: 20110219
  Serious: No
  Sender: FDA-Public Use
  Company Number: US-PFIZER INC-2007015166

PATIENT
  Sex: Female

DRUGS (2)
  1. CHANTIX [Suspect]
     Indication: SMOKING CESSATION THERAPY
  2. WELLBUTRIN [Concomitant]

REACTIONS (3)
  - ANXIETY [None]
  - ARTHRALGIA [None]
  - DEPRESSED MOOD [None]
